FAERS Safety Report 8885806 (Version 1)
Quarter: 2012Q4

REPORT INFORMATION
  Report Type: 
  Country: CA (occurrence: CA)
  Receive Date: 20121101
  Receipt Date: 20121101
  Transmission Date: 20130627
  Serious: Yes (Other)
  Sender: FDA-Public Use
  Company Number: PHHO2005CA15726

PATIENT
  Age: 76 Year
  Sex: Male

DRUGS (14)
  1. SANDOSTATIN LAR (PATIENT BASIS) [Suspect]
     Indication: CARCINOID TUMOUR
     Dosage: 20 mg, once a month
     Dates: start: 20050422
  2. SANDOSTATIN LAR (PATIENT BASIS) [Suspect]
     Dosage: 30 mg, QMO
     Route: 030
     Dates: start: 20050422
  3. DIOVAN [Suspect]
  4. CALCIUM CARBONATE [Concomitant]
  5. CALCIUM W/VITAMIN D NOS [Concomitant]
  6. HYTRIN [Concomitant]
  7. LABETALOL [Concomitant]
  8. NORVASC [Concomitant]
  9. NOVOLIN 70/30 [Concomitant]
  10. ANTINEOPLASTIC AGENTS [Concomitant]
     Dates: start: 20060418, end: 20060519
  11. ARTHROTEC [Concomitant]
     Dosage: 75 mg, UNK
  12. OXYCODONE [Concomitant]
     Dosage: 5mg/325mg
  13. ACETAMINOPHEN [Concomitant]
  14. SYNTHROID [Concomitant]

REACTIONS (20)
  - Blood glucose fluctuation [Unknown]
  - Condition aggravated [Unknown]
  - Cold sweat [Unknown]
  - Bradycardia [Unknown]
  - Loss of consciousness [Unknown]
  - Dehydration [Unknown]
  - Neoplasm [Unknown]
  - Injection site pain [Unknown]
  - Injection site reaction [Unknown]
  - Diarrhoea [Not Recovered/Not Resolved]
  - Hot flush [Unknown]
  - Back pain [Unknown]
  - Chest pain [Unknown]
  - Asthenia [Unknown]
  - Fatigue [Unknown]
  - Dizziness [Unknown]
  - Pain [Unknown]
  - Muscle spasms [Unknown]
  - Blood pressure systolic increased [Unknown]
  - Device issue [Unknown]
